FAERS Safety Report 18066340 (Version 2)
Quarter: 2022Q3

REPORT INFORMATION
  Report Type: Spontaneous
  Country: US (occurrence: US)
  Receive Date: 20200724
  Receipt Date: 20220927
  Transmission Date: 20221026
  Serious: Yes (Hospitalization)
  Sender: FDA-Public Use
  Company Number: US-PFIZER INC-2020281379

PATIENT
  Age: 84 Year
  Sex: Female
  Weight: 72.57 kg

DRUGS (5)
  1. VYNDAMAX [Suspect]
     Active Substance: TAFAMIDIS
     Indication: Cardiac amyloidosis
     Dosage: 61 MG, 1X/DAY
     Route: 048
     Dates: start: 202006
  2. METOPROLOL [Concomitant]
     Active Substance: METOPROLOL
     Indication: Hypertension
     Dosage: 12.5 MG, 1X/DAY
  3. CALCIUM WITH VITAMIN D [CALCIUM CARBONATE;COLECALCIFEROL] [Concomitant]
     Dosage: UNK
  4. SPIRONOLACTONE [Concomitant]
     Active Substance: SPIRONOLACTONE
     Dosage: UNK
  5. OSTEO BI-FLEX [CHONDROITIN SULFATE;GLUCOSAMINE HYDROCHLORIDE] [Concomitant]
     Indication: Arthralgia
     Dosage: UNK

REACTIONS (4)
  - Gastrointestinal obstruction [Recovering/Resolving]
  - Spinal operation [Unknown]
  - Blood magnesium decreased [Unknown]
  - Weight increased [Unknown]

NARRATIVE: CASE EVENT DATE: 20220901
